FAERS Safety Report 7477241-2 (Version None)
Quarter: 2011Q2

REPORT INFORMATION
  Report Type: 
  Country: None (occurrence: None)
  Receive Date: 20110513
  Receipt Date: 20110503
  Transmission Date: 20111010
  Serious: Yes (Hospitalization)
  Sender: FDA-Public Use
  Company Number: US-BIOGENIDEC-2011BI015186

PATIENT
  Age: 63 Year
  Sex: Female

DRUGS (6)
  1. TIZANIDINE HCL [Concomitant]
     Indication: MUSCLE SPASTICITY
     Dates: start: 20070312
  2. TROSPIUM CHLORIDE [Concomitant]
     Indication: NEUROGENIC BLADDER
     Dates: start: 20101011
  3. CITRUCEL [Concomitant]
     Indication: CONSTIPATION
     Dates: start: 20090716
  4. TYSABRI [Suspect]
     Indication: MULTIPLE SCLEROSIS
     Route: 042
     Dates: start: 20070613
  5. IBANDRONATE [Concomitant]
     Indication: OSTEOPOROSIS
     Dates: start: 20090716
  6. ESOMEPRAZOLE [Concomitant]
     Indication: GASTROOESOPHAGEAL REFLUX DISEASE
     Dates: start: 20090716

REACTIONS (1)
  - LUNG NEOPLASM MALIGNANT [None]
